FAERS Safety Report 9769701 (Version 1)
Quarter: 2013Q4

REPORT INFORMATION
  Report Type: Spontaneous
  Country: US (occurrence: None)
  Receive Date: 20131217
  Receipt Date: 20131217
  Transmission Date: 20140711
  Serious: Yes (Life-Threatening, Hospitalization)
  Sender: FDA-Public Use
  Company Number: None

PATIENT
  Age: 77 Year
  Sex: Male
  Weight: 119 kg

DRUGS (13)
  1. DABIGATRAN [Suspect]
     Indication: ATRIAL FIBRILLATION
     Dosage: 1 CAPSULE, BID, ORAL
     Route: 048
  2. PRADAXA [Concomitant]
  3. IMDUR [Concomitant]
  4. METOPROLOL [Concomitant]
  5. FUROSEMIDE [Concomitant]
  6. BUPROPRION SR [Concomitant]
  7. SPIRINOLACTONE [Concomitant]
  8. HYDROCHLOROTHIAZIDE [Concomitant]
  9. AMLODIPINE [Concomitant]
  10. ASPIRIN [Concomitant]
  11. ATORVASTATIN [Concomitant]
  12. IRBESARTAN [Concomitant]
  13. EZETEMIBE [Concomitant]

REACTIONS (4)
  - Small intestinal obstruction [None]
  - Dialysis [None]
  - Activated partial thromboplastin time prolonged [None]
  - Blood creatinine increased [None]
